FAERS Safety Report 5223901-3 (Version None)
Quarter: 2007Q1

REPORT INFORMATION
  Report Type: 
  Country: None (occurrence: None)
  Receive Date: 20070130
  Receipt Date: 20070124
  Transmission Date: 20070707
  Serious: Yes (Life-Threatening, Other)
  Sender: FDA-Public Use
  Company Number: 2007AC00148

PATIENT
  Age: 75 Year
  Sex: Male

DRUGS (5)
  1. BUPIVACAINE [Suspect]
     Indication: ANAESTHESIA
     Route: 053
  2. LIDOCAINE [Suspect]
     Indication: ANAESTHESIA
     Route: 053
  3. MIDAZOLAM HCL [Concomitant]
  4. PROPOFOL [Concomitant]
  5. LIDOCAINE [Concomitant]

REACTIONS (2)
  - ANAESTHESIA [None]
  - CONVULSION [None]
